FAERS Safety Report 21540182 (Version 1)
Quarter: 2022Q4

REPORT INFORMATION
  Report Type: Report from Study
  Country: CN (occurrence: None)
  Receive Date: 20221102
  Receipt Date: 20221102
  Transmission Date: 20230113
  Serious: Yes (Hospitalization)
  Sender: FDA-Public Use
  Company Number: CN-ROCHE-3206699

PATIENT
  Age: 70 Year
  Sex: Female
  Weight: 56.3 kg

DRUGS (18)
  1. BEVACIZUMAB [Suspect]
     Active Substance: BEVACIZUMAB
     Indication: Non-small cell lung cancer metastatic
     Route: 041
     Dates: start: 20220525, end: 20220525
  2. BEVACIZUMAB [Suspect]
     Active Substance: BEVACIZUMAB
     Dosage: STRENGTH (100 MG (4 ML)/VIAL)
     Route: 041
     Dates: start: 20220616, end: 20220616
  3. BEVACIZUMAB [Suspect]
     Active Substance: BEVACIZUMAB
     Dosage: STRENGTH (100 MG (4 ML)/VIAL)
     Route: 041
     Dates: start: 20220706, end: 20220706
  4. BEVACIZUMAB [Suspect]
     Active Substance: BEVACIZUMAB
     Dosage: STRENGTH (100 MG (4 ML)/VIAL)
     Route: 041
     Dates: start: 20220728, end: 20220728
  5. BEVACIZUMAB [Suspect]
     Active Substance: BEVACIZUMAB
     Dosage: STRENGTH (100 MG (4 ML)/VIAL)
     Route: 041
     Dates: start: 20220824, end: 20220824
  6. BEVACIZUMAB [Suspect]
     Active Substance: BEVACIZUMAB
     Dosage: STRENGTH (100 MG (4 ML)/VIAL)
     Route: 041
     Dates: start: 20220922, end: 20220922
  7. PACLITAXEL [Suspect]
     Active Substance: PACLITAXEL
     Indication: Non-small cell lung cancer metastatic
     Dosage: (STRENGTH: 5 ML: 30 MG)
     Route: 041
     Dates: start: 20220525, end: 20220525
  8. PACLITAXEL [Suspect]
     Active Substance: PACLITAXEL
     Dosage: (STRENGTH: 5 ML: 30 MG)
     Route: 041
     Dates: start: 20220616, end: 20220616
  9. PACLITAXEL [Suspect]
     Active Substance: PACLITAXEL
     Dosage: (STRENGTH: 5 ML: 30 MG)
     Route: 041
     Dates: start: 20220706, end: 20220706
  10. PACLITAXEL [Suspect]
     Active Substance: PACLITAXEL
     Dosage: (STRENGTH: 5 ML: 30 MG)
     Route: 041
     Dates: start: 20220728, end: 20220728
  11. PACLITAXEL [Suspect]
     Active Substance: PACLITAXEL
     Dosage: (STRENGTH: 5 ML: 30 MG)
     Route: 041
     Dates: start: 20220824, end: 20220824
  12. PACLITAXEL [Suspect]
     Active Substance: PACLITAXEL
     Dosage: (STRENGTH: 5 ML: 30 MG)
     Route: 041
     Dates: start: 20220922, end: 20220922
  13. CARBOPLATIN [Suspect]
     Active Substance: CARBOPLATIN
     Indication: Non-small cell lung cancer metastatic
     Dosage: (STRENGTH: 10 ML: 100 MG)
     Route: 041
     Dates: start: 20220525, end: 20220525
  14. CARBOPLATIN [Suspect]
     Active Substance: CARBOPLATIN
     Dosage: (STRENGTH: 10 ML: 100 MG)
     Route: 041
     Dates: start: 20220616, end: 20220616
  15. CARBOPLATIN [Suspect]
     Active Substance: CARBOPLATIN
     Dosage: (STRENGTH: 10 ML: 100 MG)
     Route: 041
     Dates: start: 20220706, end: 20220706
  16. CARBOPLATIN [Suspect]
     Active Substance: CARBOPLATIN
     Dosage: (STRENGTH: 10 ML: 100 MG)
     Route: 041
     Dates: start: 20220728, end: 20220728
  17. CARBOPLATIN [Suspect]
     Active Substance: CARBOPLATIN
     Dosage: (STRENGTH: 10 ML: 100 MG)
     Route: 041
     Dates: start: 20220824, end: 20220824
  18. CARBOPLATIN [Suspect]
     Active Substance: CARBOPLATIN
     Dosage: (STRENGTH: 10 ML: 100 MG)
     Route: 041
     Dates: start: 20220922, end: 20220922

REACTIONS (2)
  - Platelet count decreased [Not Recovered/Not Resolved]
  - Gingival bleeding [Not Recovered/Not Resolved]

NARRATIVE: CASE EVENT DATE: 20221009
